FAERS Safety Report 7760094-2 (Version None)
Quarter: 2011Q3

REPORT INFORMATION
  Report Type: 
  Country: None (occurrence: None)
  Receive Date: 20110919
  Receipt Date: 20110914
  Transmission Date: 20111222
  Serious: Yes (Hospitalization)
  Sender: FDA-Public Use
  Company Number: CHPA2011US12446

PATIENT
  Age: 89 Year
  Sex: Female

DRUGS (4)
  1. CALCIUM CARBONATE [Concomitant]
  2. ENSURE [Concomitant]
  3. CARAFATE [Concomitant]
  4. PREVACID 24 HR [Suspect]
     Indication: GASTROOESOPHAGEAL REFLUX DISEASE
     Dosage: 15 MG, QD
     Route: 048
     Dates: start: 20110401

REACTIONS (5)
  - TREATMENT NONCOMPLIANCE [None]
  - OFF LABEL USE [None]
  - BLOOD PRESSURE ABNORMAL [None]
  - HEART RATE IRREGULAR [None]
  - INCORRECT DRUG ADMINISTRATION DURATION [None]
